FAERS Safety Report 7500730-9 (Version None)
Quarter: 2011Q2

REPORT INFORMATION
  Report Type: 
  Country: None (occurrence: None)
  Receive Date: 20110524
  Receipt Date: 20110516
  Transmission Date: 20111010
  Serious: Yes (Hospitalization)
  Sender: FDA-Public Use
  Company Number: PHHY2011RU42288

PATIENT
  Age: 35 Year
  Sex: Female

DRUGS (3)
  1. METRONIDAZOLE [Concomitant]
     Dosage: UNK UKN, UNK
  2. DEXAMETHASONE [Concomitant]
     Dosage: UNK UKN, UNK
  3. AMOXICILLIN AND CLAVULANATE POTASSIUM [Suspect]
     Indication: SALPINGO-OOPHORITIS
     Dosage: UNK UKN, UNK
     Route: 048
     Dates: start: 20110202

REACTIONS (4)
  - PRURITUS [None]
  - OEDEMA PERIPHERAL [None]
  - URTICARIA [None]
  - FACE OEDEMA [None]
